FAERS Safety Report 7772342-3 (Version None)
Quarter: 2011Q3

REPORT INFORMATION
  Report Type: 
  Country: None (occurrence: None)
  Receive Date: 20110922
  Receipt Date: 20100517
  Transmission Date: 20111222
  Serious: No
  Sender: FDA-Public Use
  Company Number: US-ASTRAZENECA-2010SE46374

PATIENT
  Age: 16767 Day
  Sex: Female

DRUGS (16)
  1. ZOLOFT [Concomitant]
     Dates: start: 20060508
  2. ESTROPIPATE [Concomitant]
     Dosage: 0.625
     Dates: start: 20060111
  3. PHENAZOPYRIDINE HCL TAB [Concomitant]
     Dosage: 10
     Dates: start: 20060403
  4. BUSPIRONE HCL [Concomitant]
     Dates: start: 20060508
  5. LYRICA [Concomitant]
     Dates: start: 20060608
  6. SUBUTEX [Concomitant]
     Dates: start: 20060616
  7. FUROSEMIDE [Concomitant]
     Dates: start: 20060111
  8. SEROQUEL [Suspect]
     Route: 048
     Dates: start: 20060608
  9. GABAPENTIN [Concomitant]
     Dates: start: 20060111
  10. CYMBALTA [Concomitant]
     Dates: start: 20060608
  11. CARISOPRODOL [Concomitant]
     Dates: start: 20060111
  12. DIPHENOXYLATE/ATRO [Concomitant]
     Dates: start: 20060325
  13. METHOCARBAMOL [Concomitant]
     Dosage: 750 M
     Dates: start: 20060612
  14. OXYCONTIN [Concomitant]
     Dosage: 10 MG-20 MG
     Dates: start: 20060113
  15. DEPAKOTE [Concomitant]
     Dates: start: 20060609
  16. POTASSIUM CL [Concomitant]
     Dates: start: 20060612

REACTIONS (7)
  - HYPOTHYROIDISM [None]
  - HYPERHIDROSIS [None]
  - VIRAL UPPER RESPIRATORY TRACT INFECTION [None]
  - COLD SWEAT [None]
  - RHINITIS ALLERGIC [None]
  - PAIN IN EXTREMITY [None]
  - NAUSEA [None]
